FAERS Safety Report 18511099 (Version 1)
Quarter: 2020Q4

REPORT INFORMATION
  Report Type: Spontaneous
  Country: CN (occurrence: CN)
  Receive Date: 20201117
  Receipt Date: 20201117
  Transmission Date: 20210114
  Serious: Yes (Other)
  Sender: FDA-Public Use
  Company Number: CN-009507513-2011CHN009857

PATIENT
  Age: 4 Year
  Sex: Male

DRUGS (1)
  1. SINGULAIR [Suspect]
     Active Substance: MONTELUKAST SODIUM
     Indication: NASOPHARYNGITIS
     Dosage: UNK
     Route: 048

REACTIONS (7)
  - Asthenia [Unknown]
  - Product use in unapproved indication [Unknown]
  - Myocardial necrosis marker increased [Unknown]
  - Transaminases increased [Unknown]
  - Joint swelling [Unknown]
  - Joint effusion [Unknown]
  - Mobility decreased [Unknown]
